FAERS Safety Report 19200831 (Version 13)
Quarter: 2022Q3

REPORT INFORMATION
  Report Type: Report from Study
  Country: CL (occurrence: None)
  Receive Date: 20210430
  Receipt Date: 20220726
  Transmission Date: 20221027
  Serious: Yes (Other)
  Sender: FDA-Public Use
  Company Number: CL-EISAI MEDICAL RESEARCH-EC-2021-091989

PATIENT
  Age: 69 Year
  Sex: Male
  Weight: 75.5 kg

DRUGS (18)
  1. LENVATINIB [Suspect]
     Active Substance: LENVATINIB
     Indication: Adenocarcinoma gastric
     Route: 048
     Dates: start: 20210308, end: 20210421
  2. LENVATINIB [Suspect]
     Active Substance: LENVATINIB
     Indication: Oesophageal adenocarcinoma
     Route: 048
     Dates: start: 20210507
  3. PEMBROLIZUMAB [Suspect]
     Active Substance: PEMBROLIZUMAB
     Indication: Oesophageal adenocarcinoma
     Route: 041
     Dates: start: 20210308, end: 20210308
  4. PEMBROLIZUMAB [Suspect]
     Active Substance: PEMBROLIZUMAB
     Indication: Adenocarcinoma gastric
     Route: 041
     Dates: start: 20210507
  5. OXALIPLATIN [Suspect]
     Active Substance: OXALIPLATIN
     Indication: Oesophageal adenocarcinoma
     Route: 041
     Dates: start: 20210308, end: 20210413
  6. OXALIPLATIN [Suspect]
     Active Substance: OXALIPLATIN
     Indication: Adenocarcinoma gastric
     Route: 041
     Dates: start: 20210507
  7. LEUCOVORIN [Suspect]
     Active Substance: LEUCOVORIN
     Indication: Oesophageal adenocarcinoma
     Route: 041
     Dates: start: 20210308, end: 20210413
  8. LEUCOVORIN [Suspect]
     Active Substance: LEUCOVORIN
     Indication: Adenocarcinoma gastric
     Route: 041
     Dates: start: 20210507
  9. FLUOROURACIL [Suspect]
     Active Substance: FLUOROURACIL
     Indication: Oesophageal adenocarcinoma
     Dosage: BOLUS
     Route: 040
     Dates: start: 20210308, end: 20210413
  10. FLUOROURACIL [Suspect]
     Active Substance: FLUOROURACIL
     Indication: Adenocarcinoma gastric
     Dosage: CONTINUOUS
     Route: 041
     Dates: start: 20210308, end: 20210415
  11. FLUOROURACIL [Suspect]
     Active Substance: FLUOROURACIL
     Dosage: 2400 MG/M2 (CONTINUOUS)
     Route: 041
     Dates: start: 20210507
  12. FLUOROURACIL [Suspect]
     Active Substance: FLUOROURACIL
     Dosage: BOLUS
     Route: 040
     Dates: start: 20210507
  13. LOSARTAN [Concomitant]
     Active Substance: LOSARTAN
     Dates: start: 201301
  14. CARVEDILOL [Concomitant]
     Active Substance: CARVEDILOL
     Dates: start: 202101
  15. TRAMADOL HYDROCHLORIDE [Concomitant]
     Active Substance: TRAMADOL HYDROCHLORIDE
     Dates: start: 202101
  16. FILGRASTIM [Concomitant]
     Active Substance: FILGRASTIM
     Dates: start: 20210406, end: 20210409
  17. PREDNISONE [Concomitant]
     Active Substance: PREDNISONE
     Dates: start: 20210406, end: 20210413
  18. LORATADINE [Concomitant]
     Active Substance: LORATADINE
     Dates: start: 20210406, end: 20210413

REACTIONS (1)
  - Atrial thrombosis [Recovered/Resolved]

NARRATIVE: CASE EVENT DATE: 20210422
